FAERS Safety Report 8333578-6 (Version None)
Quarter: 2012Q2

REPORT INFORMATION
  Report Type: 
  Country: None (occurrence: None)
  Receive Date: 20120503
  Receipt Date: 20120426
  Transmission Date: 20120825
  Serious: Yes (Other)
  Sender: FDA-Public Use
  Company Number: PHHY2012AU027695

PATIENT
  Sex: Female

DRUGS (3)
  1. CLOZARIL [Suspect]
     Indication: SCHIZOPHRENIA
     Dosage: 200 MG, UNK
     Route: 048
     Dates: start: 20020506
  2. ELEVIT RDI [Concomitant]
     Dosage: 1 DF, QD
  3. FOLATE SODIUM [Concomitant]
     Route: 048

REACTIONS (2)
  - ANXIETY [None]
  - ABORTION SPONTANEOUS [None]
